FAERS Safety Report 8246684 (Version 4)
Quarter: 2013Q1

REPORT INFORMATION
  Report Type: Spontaneous
  Country: GB (occurrence: GB)
  Receive Date: 20111116
  Receipt Date: 20130313
  Transmission Date: 20140127
  Serious: Yes (Hospitalization, Other)
  Sender: FDA-Public Use
  Company Number: GB-PFIZER INC-2011274058

PATIENT
  Age: 14 Month
  Sex: Male
  Weight: 10.4 kg

DRUGS (3)
  1. REFACTO AF [Suspect]
     Indication: FACTOR VIII DEFICIENCY
     Dosage: 1 DOSE (UNKNOWN UNITS AND FREQUENCY)
     Route: 042
     Dates: start: 201105
  2. REFACTO AF [Suspect]
     Dosage: 3 DOSES (UNKNOWN UNITS AND FREQUENCY)
     Route: 042
     Dates: start: 201106
  3. REFACTO AF [Suspect]
     Dosage: RECURRENT TREATMENTS (UNKNOWN UNITS AND FREQUENCIES)
     Route: 042

REACTIONS (3)
  - Factor VIII inhibition [Recovered/Resolved with Sequelae]
  - Post procedural haematoma [Unknown]
  - Haemoglobin decreased [Unknown]
